FAERS Safety Report 24219360 (Version 3)
Quarter: 2024Q4

REPORT INFORMATION
  Report Type: Spontaneous
  Country: AU (occurrence: AU)
  Receive Date: 20240816
  Receipt Date: 20241015
  Transmission Date: 20250114
  Serious: Yes (Hospitalization)
  Sender: JAZZ
  Company Number: AU-JAZZ PHARMACEUTICALS-2024-AU-012501

PATIENT

DRUGS (1)
  1. XYREM [Suspect]
     Active Substance: SODIUM OXYBATE
     Indication: Product used for unknown indication
     Dosage: UNK

REACTIONS (4)
  - Dizziness [Unknown]
  - Nausea [Unknown]
  - Disorientation [Unknown]
  - Product taste abnormal [Unknown]
